FAERS Safety Report 11653144 (Version 1)
Quarter: 2015Q4

REPORT INFORMATION
  Report Type: Spontaneous
  Country: US (occurrence: None)
  Receive Date: 20151022
  Receipt Date: 20151022
  Transmission Date: 20160304
  Serious: Yes (Disabling, Other)
  Sender: FDA-Public Use
  Company Number: None

PATIENT
  Age: 30 Year
  Sex: Female
  Weight: 77.11 kg

DRUGS (7)
  1. CLONAZEPAM. [Concomitant]
     Active Substance: CLONAZEPAM
  2. MONOCYCLINE [Concomitant]
  3. MULTIVITAMIN [Concomitant]
     Active Substance: VITAMINS
  4. PARAGARD T 380A [Suspect]
     Active Substance: COPPER
     Dates: start: 20150924, end: 20151015
  5. ZYRTEC [Concomitant]
     Active Substance: CETIRIZINE HYDROCHLORIDE
  6. DIFFERIN [Concomitant]
     Active Substance: ADAPALENE
  7. VITAMIN D3 [Concomitant]
     Active Substance: CHOLECALCIFEROL

REACTIONS (4)
  - Abortion spontaneous [None]
  - Pregnancy with contraceptive device [None]
  - Pain [None]
  - Exposure during pregnancy [None]

NARRATIVE: CASE EVENT DATE: 20151016
